FAERS Safety Report 6316830-5 (Version None)
Quarter: 2009Q3

REPORT INFORMATION
  Report Type: 
  Country: None (occurrence: None)
  Receive Date: 20090820
  Receipt Date: 20090811
  Transmission Date: 20100115
  Serious: Yes (Life-Threatening, Hospitalization, Other)
  Sender: FDA-Public Use
  Company Number: US-ROCHE-644440

PATIENT
  Sex: Male

DRUGS (17)
  1. PEGASYS [Suspect]
     Indication: HEPATITIS C
     Route: 058
  2. COPEGUS [Suspect]
     Indication: HEPATITIS C
     Route: 048
  3. TRAMADOL [Concomitant]
  4. NEURONTIN [Concomitant]
  5. COUMADIN [Concomitant]
  6. ATENOLOL [Concomitant]
  7. PENTOXIFYLLINE [Concomitant]
  8. AMLODIPINE [Concomitant]
  9. LASIX [Concomitant]
  10. ENALAPRIL MALEATE [Concomitant]
  11. BENADRYL [Concomitant]
  12. RISPERIDONE [Concomitant]
  13. PROZAC [Concomitant]
  14. VICODIN [Concomitant]
  15. VERAPAMIL [Concomitant]
  16. KLONOPIN [Concomitant]
  17. SEROQUEL [Concomitant]

REACTIONS (2)
  - DEEP VEIN THROMBOSIS [None]
  - INTERNATIONAL NORMALISED RATIO ABNORMAL [None]
